FAERS Safety Report 8468167 (Version 2)
Quarter: 2013Q1

REPORT INFORMATION
  Report Type: Spontaneous
  Country: US (occurrence: US)
  Receive Date: 20120320
  Receipt Date: 20130308
  Transmission Date: 20140127
  Serious: Yes (Hospitalization)
  Sender: FDA-Public Use
  Company Number: US-GLAXOSMITHKLINE-A0970382A

PATIENT
  Age: 44 Year
  Sex: Female

DRUGS (13)
  1. MELPHALAN [Suspect]
     Indication: BONE MARROW TRANSPLANT
     Route: 042
     Dates: start: 20111001, end: 20111002
  2. NEUPOGEN [Suspect]
     Indication: PRODUCT USED FOR UNKNOWN INDICATION
     Route: 065
     Dates: start: 20111009, end: 20111016
  3. FOLIC ACID [Concomitant]
  4. GEODON [Concomitant]
  5. KLONOPIN [Concomitant]
  6. LITHIUM [Concomitant]
  7. MAGNESIUM [Concomitant]
  8. MULTIVITAMIN [Concomitant]
  9. PAXIL [Concomitant]
  10. ACYCLOVIR [Concomitant]
  11. BACTRIM [Concomitant]
  12. HALDOL [Concomitant]
  13. DEPAKOTE [Concomitant]

REACTIONS (10)
  - Neutropenia [Unknown]
  - Lobar pneumonia [Unknown]
  - Pyrexia [Unknown]
  - Fluid overload [Recovered/Resolved]
  - Vomiting [Unknown]
  - Hypernatraemia [Recovered/Resolved]
  - Mucosal inflammation [Unknown]
  - Diarrhoea [Unknown]
  - Nausea [Unknown]
  - International normalised ratio increased [Unknown]
